FAERS Safety Report 10977436 (Version 1)
Quarter: 2015Q2

REPORT INFORMATION
  Report Type: Spontaneous
  Country: US (occurrence: US)
  Receive Date: 20150402
  Receipt Date: 20150402
  Transmission Date: 20150821
  Serious: No
  Sender: FDA-Public Use
  Company Number: US-BIOGENIDEC-2015BI040398

PATIENT
  Age: 43 Year
  Sex: Female

DRUGS (6)
  1. PREVICID [Concomitant]
  2. BACLOFIN [Concomitant]
  3. LYRICA [Concomitant]
     Active Substance: PREGABALIN
  4. VITAMIN D [Concomitant]
     Active Substance: CHOLECALCIFEROL
  5. RIZATRIPTAN [Concomitant]
     Active Substance: RIZATRIPTAN
  6. TECFIDERA [Suspect]
     Active Substance: DIMETHYL FUMARATE
     Indication: MULTIPLE SCLEROSIS
     Route: 048
     Dates: start: 20150320

REACTIONS (6)
  - Epistaxis [Unknown]
  - Local swelling [Unknown]
  - Burning sensation [Unknown]
  - Myalgia [Recovered/Resolved]
  - Swelling [Unknown]
  - Wheezing [Unknown]
